FAERS Safety Report 11007969 (Version 2)
Quarter: 2015Q3

REPORT INFORMATION
  Report Type: Spontaneous
  Country: US (occurrence: US)
  Receive Date: 20150410
  Receipt Date: 20150729
  Transmission Date: 20151125
  Serious: No
  Sender: FDA-Public Use
  Company Number: US-BRISTOL-MYERS SQUIBB COMPANY-BMS-2015-022385

PATIENT
  Sex: Male

DRUGS (1)
  1. ABILIFY [Suspect]
     Active Substance: ARIPIPRAZOLE
     Indication: OBSESSIVE-COMPULSIVE DISORDER
     Dosage: 20 MG, UNK
     Route: 065

REACTIONS (4)
  - Negative thoughts [Unknown]
  - Weight increased [Unknown]
  - Obsessive-compulsive disorder [Unknown]
  - Memory impairment [Unknown]
